FAERS Safety Report 10181410 (Version 3)
Quarter: 2014Q2

REPORT INFORMATION
  Report Type: Spontaneous
  Country: BR (occurrence: BR)
  Receive Date: 20140519
  Receipt Date: 20140521
  Transmission Date: 20141212
  Serious: Yes (Life-Threatening, Hospitalization, Disabling, Other)
  Sender: FDA-Public Use
  Company Number: BR-BRISTOL-MYERS SQUIBB COMPANY-20561726

PATIENT
  Age: 57 Year
  Sex: Female

DRUGS (2)
  1. BYETTA [Suspect]
     Indication: TYPE 2 DIABETES MELLITUS
     Dates: start: 201101
  2. BYETTA [Suspect]
     Indication: PROPHYLAXIS
     Dates: start: 201101

REACTIONS (3)
  - Pancreatitis acute [Not Recovered/Not Resolved]
  - Drug ineffective [Unknown]
  - Cardiac disorder [Unknown]
